FAERS Safety Report 9183637 (Version 1)
Quarter: 2013Q1

REPORT INFORMATION
  Report Type: Spontaneous
  Country: US (occurrence: US)
  Receive Date: 20130322
  Receipt Date: 20130322
  Transmission Date: 20140127
  Serious: No
  Sender: FDA-Public Use
  Company Number: US-BRISTOL-MYERS SQUIBB COMPANY-16571911

PATIENT
  Age: 37 Year
  Sex: Female

DRUGS (3)
  1. ERBITUX [Suspect]
     Indication: COLON CANCER
     Dosage: INTER FOR 6 WEEKS
     Dates: start: 2012
  2. FOLINIC ACID [Concomitant]
  3. 5-FLUOROURACIL [Concomitant]

REACTIONS (4)
  - Rash [Recovering/Resolving]
  - Nausea [Unknown]
  - Growth of eyelashes [Unknown]
  - Dry skin [Unknown]
